FAERS Safety Report 5914876-X (Version None)
Quarter: 2008Q4

REPORT INFORMATION
  Report Type: 
  Country: None (occurrence: None)
  Receive Date: 20081010
  Receipt Date: 20081002
  Transmission Date: 20090506
  Serious: Yes (Death, Hospitalization)
  Sender: FDA-Public Use
  Company Number: PHHO2008FR08370

PATIENT
  Sex: Female

DRUGS (17)
  1. RAD 666 RAD+TAB [Suspect]
     Indication: ENDOMETRIAL CANCER
     Dosage: 10 MG, DAILY
     Route: 048
     Dates: start: 20080618, end: 20080702
  2. RAD 666 RAD+TAB [Suspect]
     Dosage: 5 MG, DAILY
     Dates: end: 20080806
  3. ZOMETA [Suspect]
  4. AMINOGLYCOSIDE ANTIBACTERIALS [Suspect]
  5. GLUCOPHAGE [Concomitant]
  6. LEVOTHYROX [Concomitant]
  7. LAROXYL [Concomitant]
  8. AMOTRIL [Concomitant]
  9. DOLIPRANE [Concomitant]
  10. RYTHMOL [Concomitant]
  11. ALPHA [Concomitant]
  12. HYPERIUM [Concomitant]
  13. TARDYFERON [Concomitant]
  14. INIPOMP [Concomitant]
  15. SKENAN [Concomitant]
  16. MORPHINE [Concomitant]
  17. CACIT D3 [Concomitant]

REACTIONS (25)
  - ABDOMINAL MASS [None]
  - ANAEMIA [None]
  - ASTHENIA [None]
  - C-REACTIVE PROTEIN INCREASED [None]
  - CONFUSIONAL STATE [None]
  - DIARRHOEA [None]
  - DRUG INEFFECTIVE [None]
  - ELECTROENCEPHALOGRAM ABNORMAL [None]
  - ESCHERICHIA BACTERAEMIA [None]
  - GENERAL PHYSICAL HEALTH DETERIORATION [None]
  - HYPERTHERMIA [None]
  - HYPOCALCAEMIA [None]
  - LEUKOCYTURIA [None]
  - MALIGNANT NEOPLASM PROGRESSION [None]
  - MULTI-ORGAN FAILURE [None]
  - PYELOCALIECTASIS [None]
  - PYREXIA [None]
  - RASH [None]
  - RENAL FAILURE ACUTE [None]
  - RENAL IMPAIRMENT [None]
  - SEPSIS [None]
  - SOMNOLENCE [None]
  - STREPTOCOCCAL BACTERAEMIA [None]
  - THROMBOCYTOPENIA [None]
  - VITAMIN B12 DEFICIENCY [None]
